FAERS Safety Report 4881896-6 (Version None)
Quarter: 2006Q1

REPORT INFORMATION
  Report Type: 
  Country: None (occurrence: None)
  Receive Date: 20060112
  Receipt Date: 20060103
  Transmission Date: 20060701
  Serious: Yes (Other)
  Sender: FDA-Public Use
  Company Number: LTI2005A00307

PATIENT
  Age: 61 Year
  Sex: Male

DRUGS (5)
  1. ACTOS [Suspect]
     Indication: DIABETES MELLITUS NON-INSULIN-DEPENDENT
     Dosage: 30 MG (30 MG, 1 IN 1 D), ORAL/DAYS
     Route: 048
     Dates: start: 20050905, end: 20051202
  2. AMARYL [Concomitant]
  3. VALIUM [Concomitant]
  4. SEGLOR (DIHYDROERGOTAMINE MESILATE) [Concomitant]
  5. TRIMETAZIDINE (TRIMETAZIDIME) [Concomitant]

REACTIONS (3)
  - ARRHYTHMIA [None]
  - ATRIAL FIBRILLATION [None]
  - CARDIAC FAILURE [None]
